FAERS Safety Report 9149285 (Version 2)
Quarter: 2013Q2

REPORT INFORMATION
  Report Type: Spontaneous
  Country: GR (occurrence: GR)
  Receive Date: 20130308
  Receipt Date: 20130402
  Transmission Date: 20140414
  Serious: Yes (Other)
  Sender: FDA-Public Use
  Company Number: GR-BRISTOL-MYERS SQUIBB COMPANY-17292632

PATIENT
  Age: 68 Year
  Sex: Male

DRUGS (2)
  1. BARACLUDE [Suspect]
     Indication: HEPATITIS B
     Dosage: 1MG
     Route: 048
     Dates: start: 2012, end: 2013
  2. VIREAD [Suspect]
     Dates: start: 2012

REACTIONS (2)
  - Haemolytic uraemic syndrome [Recovering/Resolving]
  - Blood creatinine increased [Not Recovered/Not Resolved]
